FAERS Safety Report 14698205 (Version 3)
Quarter: 2018Q2

REPORT INFORMATION
  Report Type: Spontaneous
  Country: US (occurrence: US)
  Receive Date: 20180330
  Receipt Date: 20180518
  Transmission Date: 20180711
  Serious: No
  Sender: FDA-Public Use
  Company Number: US-ASTRAZENECA-2018SE28629

PATIENT
  Age: 29376 Day
  Sex: Male
  Weight: 72.6 kg

DRUGS (8)
  1. CRESTOR [Suspect]
     Active Substance: ROSUVASTATIN CALCIUM
     Indication: BLOOD CHOLESTEROL ABNORMAL
     Route: 048
     Dates: start: 2008
  2. TIOTROPIUM BROMIDE [Suspect]
     Active Substance: TIOTROPIUM BROMIDE
     Route: 065
  3. POTASSIUM CHLORIDE. [Concomitant]
     Active Substance: POTASSIUM CHLORIDE
     Indication: JOINT SWELLING
     Dosage: 10MEQ/L DAILY
     Route: 048
     Dates: start: 2016
  4. SYMBICORT [Suspect]
     Active Substance: BUDESONIDE\FORMOTEROL FUMARATE DIHYDRATE
     Indication: CHRONIC OBSTRUCTIVE PULMONARY DISEASE
     Dosage: 80/ 4.5MCG FOR COPD, 2 INHALATIONS EVENING DOSE
     Route: 055
     Dates: start: 20180227
  5. WARFARIN [Concomitant]
     Active Substance: WARFARIN
     Indication: THROMBOSIS
  6. MONTELUKAST [Concomitant]
     Active Substance: MONTELUKAST SODIUM
     Indication: HYPERSENSITIVITY
     Dosage: 10.0MG AS REQUIRED
     Route: 048
     Dates: start: 201801
  7. FUROSEMIDE. [Concomitant]
     Active Substance: FUROSEMIDE
     Indication: BLOOD POTASSIUM ABNORMAL
     Route: 048
     Dates: start: 2016
  8. POTASSIUM CHLORIDE. [Concomitant]
     Active Substance: POTASSIUM CHLORIDE
     Indication: BLOOD PRESSURE ABNORMAL
     Dosage: 10MEQ/L DAILY
     Route: 048
     Dates: start: 2016

REACTIONS (18)
  - Dyspnoea [Unknown]
  - Circumstance or information capable of leading to device use error [Unknown]
  - Product use in unapproved indication [Unknown]
  - Memory impairment [Unknown]
  - Crepitations [Unknown]
  - Blood cholesterol increased [Unknown]
  - Dizziness [Not Recovered/Not Resolved]
  - Wheezing [Unknown]
  - Rash [Unknown]
  - Gastric disorder [Unknown]
  - Thrombosis [Unknown]
  - Gastritis [Unknown]
  - Off label use [Unknown]
  - Nasopharyngitis [Unknown]
  - Choking [Unknown]
  - Dyspepsia [Unknown]
  - Joint swelling [Unknown]
  - Cough [Unknown]

NARRATIVE: CASE EVENT DATE: 20180228
